FAERS Safety Report 11124311 (Version 1)
Quarter: 2015Q2

REPORT INFORMATION
  Report Type: Spontaneous
  Country: NO (occurrence: None)
  Receive Date: 20150518
  Receipt Date: 20150518
  Transmission Date: 20150821
  Serious: Yes (Other)
  Sender: FDA-Public Use
  Company Number: IPC201503-000160

PATIENT
  Age: 55 Year
  Sex: Female

DRUGS (3)
  1. DULOXETINE (DULOXETINE) (DULOXETINE) [Suspect]
     Active Substance: DULOXETINE
     Indication: PAIN IN EXTREMITY
  2. TRAMADOL (TRAMADOL) (TRAMADOL) [Suspect]
     Active Substance: TRAMADOL
     Indication: PAIN IN EXTREMITY
  3. CIPROFLOXACIN (CIPROFLOXACIN) (CIPROFLOXACIN) [Suspect]
     Active Substance: CIPROFLOXACIN
     Indication: URINARY TRACT INFECTION

REACTIONS (3)
  - Drug interaction [None]
  - Serotonin syndrome [None]
  - Intentional overdose [None]
